FAERS Safety Report 6297770-7 (Version None)
Quarter: 2009Q3

REPORT INFORMATION
  Report Type: 
  Country: None (occurrence: None)
  Receive Date: 20090804
  Receipt Date: 20090804
  Transmission Date: 20100115
  Serious: Yes (Death)
  Sender: FDA-Public Use
  Company Number: None

PATIENT
  Age: 28 Year
  Sex: Male
  Weight: 141.9759 kg

DRUGS (1)
  1. TRAMADOL HCL [Suspect]
     Indication: MUSCULOSKELETAL PAIN
     Dosage: 50 MG TID PRN PO
     Route: 048
     Dates: start: 20090316, end: 20090319

REACTIONS (2)
  - ACCIDENT [None]
  - DRUG TOXICITY [None]
